FAERS Safety Report 15221064 (Version 1)
Quarter: 2018Q3

REPORT INFORMATION
  Report Type: Spontaneous
  Country: CN (occurrence: CN)
  Receive Date: 20180731
  Receipt Date: 20180731
  Transmission Date: 20181010
  Serious: Yes (Hospitalization)
  Sender: FDA-Public Use
  Company Number: CN-B.I. PHARMACEUTICALS,INC./RIDGEFIELD-2018-BI-037887

PATIENT
  Age: 87 Year
  Sex: Female
  Weight: 59 kg

DRUGS (5)
  1. ACARBOSE. [Concomitant]
     Active Substance: ACARBOSE
     Indication: TYPE 2 DIABETES MELLITUS
     Route: 048
  2. INSULIN DETEMIR [Concomitant]
     Active Substance: INSULIN DETEMIR
     Indication: TYPE 2 DIABETES MELLITUS
     Route: 058
  3. MICARDIS [Suspect]
     Active Substance: TELMISARTAN
     Indication: HYPERTENSION
     Route: 065
  4. NOVOLOG [Concomitant]
     Active Substance: INSULIN ASPART
     Indication: TYPE 2 DIABETES MELLITUS
     Route: 058
  5. NORVASC [Concomitant]
     Active Substance: AMLODIPINE BESYLATE
     Indication: HYPERTENSION
     Route: 065

REACTIONS (3)
  - Senile dementia [Unknown]
  - Pneumonia [Unknown]
  - Malnutrition [Unknown]
